FAERS Safety Report 24046674 (Version 1)
Quarter: 2024Q3

REPORT INFORMATION
  Report Type: Spontaneous
  Country: US (occurrence: None)
  Receive Date: 20240703
  Receipt Date: 20240703
  Transmission Date: 20241016
  Serious: No
  Sender: Public
  Company Number: None

PATIENT
  Age: 43 Year
  Sex: Male
  Weight: 88.45 kg

DRUGS (1)
  1. ENBREL [Suspect]
     Active Substance: BENZYL ALCOHOL\ETANERCEPT
     Indication: Rheumatoid arthritis
     Dosage: INJECT 50MG SUBCUTANEOUSLY ONCE WEEKLY AS DIRECTED.
     Route: 058
     Dates: start: 202312

REACTIONS (1)
  - Hospitalisation [None]
